FAERS Safety Report 21193194 (Version 1)
Quarter: 2022Q3

REPORT INFORMATION
  Report Type: Spontaneous
  Country: US (occurrence: US)
  Receive Date: 20220810
  Receipt Date: 20220810
  Transmission Date: 20221027
  Serious: No
  Sender: FDA-Public Use
  Company Number: US-ORGANON-O2208USA000071

PATIENT
  Age: 29 Year
  Sex: Male

DRUGS (3)
  1. COZAAR [Suspect]
     Active Substance: LOSARTAN POTASSIUM
     Indication: Myocarditis
     Dosage: UNK
     Route: 048
  2. MILRINONE [Concomitant]
     Active Substance: MILRINONE
     Indication: Myocarditis
     Dosage: UNK
  3. METOPROLOL [Concomitant]
     Active Substance: METOPROLOL
     Indication: Myocarditis
     Dosage: UNK

REACTIONS (1)
  - Product use in unapproved indication [Unknown]
